FAERS Safety Report 13962824 (Version 1)
Quarter: 2017Q3

REPORT INFORMATION
  Report Type: Spontaneous
  Country: US (occurrence: US)
  Receive Date: 20170912
  Receipt Date: 20170912
  Transmission Date: 20171128
  Serious: Yes (Other)
  Sender: FDA-Public Use
  Company Number: None

PATIENT
  Age: 32 Year
  Sex: Female
  Weight: 96.75 kg

DRUGS (3)
  1. MIRENA [Suspect]
     Active Substance: LEVONORGESTREL
     Indication: CONTRACEPTION
     Dates: start: 20170509
  2. IBUPROFEN. [Concomitant]
     Active Substance: IBUPROFEN
  3. ALBUTEROL. [Concomitant]
     Active Substance: ALBUTEROL

REACTIONS (12)
  - Device dislocation [None]
  - Menorrhagia [None]
  - Device issue [None]
  - Chest pain [None]
  - Pelvic pain [None]
  - Headache [None]
  - Uterine perforation [None]
  - Migraine [None]
  - Pain [None]
  - Weight increased [None]
  - Dysmenorrhoea [None]
  - Back pain [None]

NARRATIVE: CASE EVENT DATE: 20170908
